FAERS Safety Report 6024633-4 (Version None)
Quarter: 2008Q4

REPORT INFORMATION
  Report Type: 
  Country: None (occurrence: None)
  Receive Date: 20081231
  Receipt Date: 20081218
  Transmission Date: 20090506
  Serious: Yes (Death, Hospitalization)
  Sender: FDA-Public Use
  Company Number: US-CELGENEUS-163-21880-08121254

PATIENT
  Age: 54 Year
  Sex: Male
  Weight: 121.67 kg

DRUGS (1)
  1. REVLIMID [Suspect]
     Indication: LYMPHOMA
     Route: 048
     Dates: start: 20081204, end: 20081209

REACTIONS (3)
  - HEPATIC FAILURE [None]
  - RENAL FAILURE ACUTE [None]
  - VENTRICULAR ARRHYTHMIA [None]
